FAERS Safety Report 16436541 (Version 1)
Quarter: 2019Q2

REPORT INFORMATION
  Report Type: Spontaneous
  Country: US (occurrence: US)
  Receive Date: 20190614
  Receipt Date: 20190614
  Transmission Date: 20190711
  Serious: No
  Sender: FDA-Public Use
  Company Number: US-JNJFOC-20170115219

PATIENT
  Sex: Male

DRUGS (1)
  1. TYLENOL EXTRA STRENGTH [Suspect]
     Active Substance: ACETAMINOPHEN
     Indication: PYREXIA
     Dosage: 2 CAPLETS 4 HOURS
     Route: 048

REACTIONS (1)
  - Overdose [Unknown]
